FAERS Safety Report 9357180 (Version 1)
Quarter: 2013Q2

REPORT INFORMATION
  Report Type: Spontaneous
  Country: US (occurrence: US)
  Receive Date: 20130620
  Receipt Date: 20130620
  Transmission Date: 20140414
  Serious: No
  Sender: FDA-Public Use
  Company Number: US-BIOGENIDEC-2013BI053536

PATIENT
  Age: 48 Year
  Sex: Female

DRUGS (2)
  1. AVONEX [Suspect]
     Indication: RELAPSING-REMITTING MULTIPLE SCLEROSIS
     Route: 030
     Dates: start: 20130211
  2. AVONEX [Suspect]
     Indication: RELAPSING-REMITTING MULTIPLE SCLEROSIS
     Route: 030
     Dates: start: 201303

REACTIONS (17)
  - Adverse reaction [Recovered/Resolved]
  - Muscle atrophy [Recovered/Resolved]
  - Dry skin [Not Recovered/Not Resolved]
  - Bronchitis [Recovered/Resolved]
  - Allergy to animal [Recovered/Resolved]
  - Wheezing [Recovered/Resolved]
  - General symptom [Recovered/Resolved]
  - Skin exfoliation [Not Recovered/Not Resolved]
  - Influenza [Recovered/Resolved]
  - Skin disorder [Not Recovered/Not Resolved]
  - Skin wrinkling [Not Recovered/Not Resolved]
  - Fatigue [Recovered/Resolved]
  - Pyrexia [Recovered/Resolved]
  - Chills [Recovered/Resolved]
  - Myalgia [Recovered/Resolved]
  - Muscular weakness [Recovered/Resolved]
  - Rash [Recovered/Resolved]
